FAERS Safety Report 10432619 (Version 1)
Quarter: 2014Q3

REPORT INFORMATION
  Report Type: Spontaneous
  Country: US (occurrence: None)
  Receive Date: 20140904
  Receipt Date: 20140904
  Transmission Date: 20150326
  Serious: Yes (Disabling)
  Sender: FDA-Public Use
  Company Number: None

PATIENT
  Age: 60 Year
  Sex: Female
  Weight: 103.87 kg

DRUGS (1)
  1. MONTELUKAST [Suspect]
     Active Substance: MONTELUKAST SODIUM

REACTIONS (4)
  - Condition aggravated [None]
  - Exercise tolerance decreased [None]
  - Respiratory disorder [None]
  - Obstructive airways disorder [None]

NARRATIVE: CASE EVENT DATE: 20140116
